FAERS Safety Report 16355863 (Version 2)
Quarter: 2019Q2

REPORT INFORMATION
  Report Type: Spontaneous
  Country: US (occurrence: US)
  Receive Date: 20190526
  Receipt Date: 20190625
  Transmission Date: 20190711
  Serious: No
  Sender: FDA-Public Use
  Company Number: US-JNJFOC-20190514821

PATIENT
  Age: 34 Year
  Sex: Male
  Weight: 108.51 kg

DRUGS (2)
  1. CLOZARIL [Concomitant]
     Active Substance: CLOZAPINE
     Indication: SCHIZOPHRENIA
     Route: 048
  2. RISPERDAL CONSTA [Suspect]
     Active Substance: RISPERIDONE
     Indication: SCHIZOPHRENIA
     Route: 030
     Dates: start: 201812

REACTIONS (3)
  - Underdose [Unknown]
  - Complication associated with device [Unknown]
  - Medication error [Unknown]

NARRATIVE: CASE EVENT DATE: 20190510
